FAERS Safety Report 8957309 (Version 2)
Quarter: 2013Q1

REPORT INFORMATION
  Report Type: Spontaneous
  Country: SG (occurrence: SG)
  Receive Date: 20121211
  Receipt Date: 20130108
  Transmission Date: 20140127
  Serious: Yes (Death, Hospitalization)
  Sender: FDA-Public Use
  Company Number: SG-SANOFI-AVENTIS-2012SA090066

PATIENT
  Age: 66 Year
  Sex: Male
  Weight: 61.8 kg

DRUGS (1)
  1. TAXOTERE [Suspect]
     Indication: NASOPHARYNGEAL CANCER
     Dosage: FREQUENCY-40 MG DAY 1,8,15,28
     Route: 042
     Dates: start: 20120730, end: 20120910

REACTIONS (5)
  - Tuberculosis [Fatal]
  - Asthenia [Fatal]
  - Pyrexia [Fatal]
  - Oxygen saturation decreased [Fatal]
  - Respiratory failure [Fatal]
